FAERS Safety Report 7381236-7 (Version None)
Quarter: 2011Q1

REPORT INFORMATION
  Report Type: 
  Country: None (occurrence: None)
  Receive Date: 20110329
  Receipt Date: 20100830
  Transmission Date: 20110831
  Serious: Yes (Other)
  Sender: FDA-Public Use
  Company Number: US-BAYER-200942660NA

PATIENT
  Sex: Female
  Weight: 80 kg

DRUGS (16)
  1. YAZ [Suspect]
     Indication: ENDOMETRIOSIS
     Route: 048
     Dates: start: 20080801
  2. YAZ [Suspect]
     Indication: PELVIC PAIN
  3. AMBIEN CR [Concomitant]
  4. ACETAMINOPHEN AND HYDROCODONE BITARTRATE [Concomitant]
  5. OCELLA [Suspect]
     Indication: ENDOMETRIOSIS
     Route: 048
     Dates: start: 20080801, end: 20090801
  6. LEVOXYL [Concomitant]
     Dates: start: 20020101
  7. CYTOMEL [Concomitant]
     Dates: start: 20050101
  8. MULTI-VITAMIN [Concomitant]
  9. YASMIN [Suspect]
     Indication: PELVIC PAIN
  10. YAZ [Suspect]
     Indication: GENITAL HAEMORRHAGE
  11. ZYMAR [Concomitant]
  12. YASMIN [Suspect]
     Indication: ENDOMETRIOSIS
     Dosage: UNK
     Route: 048
     Dates: start: 20060717, end: 20080501
  13. YASMIN [Suspect]
     Indication: GENITAL HAEMORRHAGE
  14. FLAX SEED OIL [Concomitant]
  15. OCELLA [Suspect]
     Indication: PELVIC PAIN
  16. OCELLA [Suspect]
     Indication: GENITAL HAEMORRHAGE

REACTIONS (10)
  - CHILLS [None]
  - NAUSEA [None]
  - GALLBLADDER DISORDER [None]
  - CHOLELITHIASIS [None]
  - ABDOMINAL PAIN UPPER [None]
  - CHOLECYSTITIS CHRONIC [None]
  - ABDOMINAL DISCOMFORT [None]
  - GASTROOESOPHAGEAL REFLUX DISEASE [None]
  - CHEST PAIN [None]
  - ABDOMINAL TENDERNESS [None]
